FAERS Safety Report 5954658-6 (Version None)
Quarter: 2008Q4

REPORT INFORMATION
  Report Type: 
  Country: None (occurrence: None)
  Receive Date: 20081117
  Receipt Date: 20081111
  Transmission Date: 20090506
  Serious: Yes (Hospitalization)
  Sender: FDA-Public Use
  Company Number: AU-WYE-G02560208

PATIENT
  Age: 32 Year
  Sex: Female

DRUGS (2)
  1. EFFEXOR XR [Suspect]
     Dosage: UNKNOWN
  2. DI-GESIC [Concomitant]
     Dosage: UNKNOWN

REACTIONS (1)
  - NONSPECIFIC REACTION [None]
